FAERS Safety Report 6958578-X (Version None)
Quarter: 2010Q3

REPORT INFORMATION
  Report Type: 
  Country: None (occurrence: None)
  Receive Date: 20100831
  Receipt Date: 20100823
  Transmission Date: 20110219
  Serious: Yes (Hospitalization)
  Sender: FDA-Public Use
  Company Number: US-US-EMD SERONO, INC.-7004745

PATIENT
  Sex: Female

DRUGS (12)
  1. REBIF [Suspect]
     Indication: MULTIPLE SCLEROSIS
     Route: 058
     Dates: start: 20100326, end: 20100101
  2. REBIF [Suspect]
     Route: 058
     Dates: start: 20100101, end: 20100101
  3. REBIF [Suspect]
     Route: 058
     Dates: start: 20100512, end: 20100820
  4. KEPPRA [Concomitant]
     Indication: CONVULSION
     Dates: start: 20100201
  5. CELEXA [Concomitant]
     Indication: DEPRESSION
     Dates: start: 20100301, end: 20100501
  6. CELEXA [Concomitant]
     Dates: start: 20100501
  7. VITAMIN D [Concomitant]
     Indication: SWELLING
  8. FISH OIL [Concomitant]
     Indication: SWELLING
  9. OSCAL [Concomitant]
     Indication: SWELLING
  10. POTASSIUM [Concomitant]
     Indication: SWELLING
  11. LASIX [Concomitant]
     Indication: SWELLING
  12. FLONASE [Concomitant]
     Indication: SEASONAL ALLERGY

REACTIONS (4)
  - DEPRESSION [None]
  - MULTIPLE SCLEROSIS RELAPSE [None]
  - OPTIC NERVE DISORDER [None]
  - SINUSITIS [None]
